FAERS Safety Report 16840841 (Version 1)
Quarter: 2019Q3

REPORT INFORMATION
  Report Type: Spontaneous
  Country: US (occurrence: US)
  Receive Date: 20190923
  Receipt Date: 20190923
  Transmission Date: 20191005
  Serious: No
  Sender: FDA-Public Use
  Company Number: US-AKRON, INC.-2074796

PATIENT
  Sex: Female

DRUGS (1)
  1. COSOPT PF [Suspect]
     Active Substance: DORZOLAMIDE HYDROCHLORIDE\TIMOLOL MALEATE
     Route: 047

REACTIONS (5)
  - Vision blurred [None]
  - Asthenopia [None]
  - Eye irritation [None]
  - Foreign body sensation in eyes [None]
  - Ocular hyperaemia [None]
